FAERS Safety Report 18806930 (Version 1)
Quarter: 2021Q1

REPORT INFORMATION
  Report Type: Spontaneous
  Country: US (occurrence: US)
  Receive Date: 20210128
  Receipt Date: 20210128
  Transmission Date: 20210419
  Serious: No
  Sender: FDA-Public Use
  Company Number: None

PATIENT
  Age: 59 Year
  Sex: Male
  Weight: 109.35 kg

DRUGS (15)
  1. DEXAMETHASONE 4MG [Concomitant]
     Active Substance: DEXAMETHASONE
  2. FENOFIBRATE 134MG [Concomitant]
     Active Substance: FENOFIBRATE
  3. VITAMIN D 1000U [Concomitant]
  4. FAMOTIDINE 20MG [Concomitant]
     Active Substance: FAMOTIDINE
  5. GLIPIZIDE 5MG [Concomitant]
     Active Substance: GLIPIZIDE
  6. ABIRATERONE ACETATE. [Suspect]
     Active Substance: ABIRATERONE ACETATE
     Indication: PROSTATE CANCER
     Route: 051
     Dates: start: 20200725, end: 20210128
  7. FUROSEMIDE 20MG [Concomitant]
     Active Substance: FUROSEMIDE
  8. GUAIFENESIN 100MG/5ML [Concomitant]
  9. LOPERAMIDE A?D 2MG [Concomitant]
  10. METFORMIN [Concomitant]
     Active Substance: METFORMIN HYDROCHLORIDE
  11. TAMSULOSIN 0.4MG [Concomitant]
     Active Substance: TAMSULOSIN
  12. LUPRON DEPOT [Concomitant]
     Active Substance: LEUPROLIDE ACETATE
  13. ATORVASTATIN 40MG [Concomitant]
     Active Substance: ATORVASTATIN
  14. CALCIUM 500 + D [Concomitant]
     Active Substance: CALCIUM\VITAMIN D
  15. METOPROLOL TARTRATE 25MG [Concomitant]
     Active Substance: METOPROLOL TARTRATE

REACTIONS (1)
  - Disease progression [None]

NARRATIVE: CASE EVENT DATE: 20210128
